FAERS Safety Report 9697911 (Version 1)
Quarter: 2013Q4

REPORT INFORMATION
  Report Type: Report from Study
  Country: US (occurrence: US)
  Receive Date: 20131120
  Receipt Date: 20131120
  Transmission Date: 20140711
  Serious: No
  Sender: FDA-Public Use
  Company Number: US-ALEXION-A201303600

PATIENT
  Sex: Female

DRUGS (2)
  1. SOLIRIS [Suspect]
     Indication: OFF LABEL USE
     Route: 042
  2. SOLIRIS [Suspect]
     Indication: PERITONITIS

REACTIONS (2)
  - Off label use [Unknown]
  - Peritonitis [Unknown]
